FAERS Safety Report 11643307 (Version 3)
Quarter: 2016Q1

REPORT INFORMATION
  Report Type: Spontaneous
  Country: US (occurrence: US)
  Receive Date: 20151020
  Receipt Date: 20160111
  Transmission Date: 20160525
  Serious: Yes (Hospitalization)
  Sender: FDA-Public Use
  Company Number: US-BAYER-2015-446260

PATIENT
  Age: 23 Year
  Sex: Female

DRUGS (1)
  1. MIRENA [Suspect]
     Active Substance: LEVONORGESTREL
     Indication: CONTRACEPTION
     Dosage: 20 MCG/24HR, CONT
     Route: 015
     Dates: start: 20110308, end: 20111101

REACTIONS (5)
  - Dysstasia [None]
  - Device issue [None]
  - Uterine perforation [None]
  - Injury [None]
  - Abdominal pain [None]

NARRATIVE: CASE EVENT DATE: 20111101
